FAERS Safety Report 8247611-3 (Version None)
Quarter: 2012Q1

REPORT INFORMATION
  Report Type: 
  Country: None (occurrence: None)
  Receive Date: 20120330
  Receipt Date: 20120323
  Transmission Date: 20120608
  Serious: Yes (Hospitalization, Other)
  Sender: FDA-Public Use
  Company Number: US-BAYER-201016509NA

PATIENT
  Age: 36 Year
  Sex: Female
  Weight: 54.422 kg

DRUGS (10)
  1. ASCORBIC ACID [Concomitant]
  2. MEVACOR [Concomitant]
     Dosage: 20 MG, QD
  3. NITROGLYCERIN [Concomitant]
     Dosage: UNK UNK, PRN
     Route: 060
  4. MORPHINE [Concomitant]
     Indication: CHEST PAIN
  5. PROMETHAZINE - CODEINE [CODEINE PHOSPHATE,PROMETHAZINE HYDROCHLORI [Concomitant]
     Dosage: 240 ML, UNK
  6. PROZAC [Concomitant]
     Dosage: 20 MG, QD
  7. YAZ [Suspect]
     Indication: PRODUCT USED FOR UNKNOWN INDICATION
     Route: 048
  8. LEXAPRO [Concomitant]
  9. TOPROL-XL [Concomitant]
     Dosage: 25 MG, QD
     Dates: start: 20090608
  10. AMOXICILLIN [Concomitant]
     Dosage: 500 MG, UNK

REACTIONS (2)
  - MYOCARDIAL INFARCTION [None]
  - THROMBOSIS [None]
